FAERS Safety Report 6746358-X (Version None)
Quarter: 2010Q2

REPORT INFORMATION
  Report Type: 
  Country: None (occurrence: None)
  Receive Date: 20100528
  Receipt Date: 20100521
  Transmission Date: 20101027
  Serious: Yes (Life-Threatening, Hospitalization, Disabling)
  Sender: FDA-Public Use
  Company Number: FR-CELGENEUS-056-21880-09071776

PATIENT
  Sex: Male

DRUGS (7)
  1. REVLIMID [Suspect]
     Route: 048
     Dates: start: 20080214, end: 20080320
  2. ADRIBLASTINE [Suspect]
     Route: 051
     Dates: start: 20070501, end: 20070801
  3. VELCADE [Suspect]
     Route: 051
     Dates: start: 20070801, end: 20071101
  4. VELCADE [Suspect]
     Route: 065
     Dates: start: 20080101
  5. ONCOVIN [Suspect]
     Route: 051
     Dates: start: 20070501, end: 20070801
  6. DECTANCYL [Suspect]
     Route: 051
     Dates: start: 20070501
  7. DEXAMETHASONE [Concomitant]
     Route: 065
     Dates: start: 20080101

REACTIONS (1)
  - CARDIOMYOPATHY [None]
